FAERS Safety Report 5752343-7 (Version None)
Quarter: 2008Q2

REPORT INFORMATION
  Report Type: 
  Country: None (occurrence: None)
  Receive Date: 20080529
  Receipt Date: 20080521
  Transmission Date: 20081010
  Serious: Yes (Hospitalization)
  Sender: FDA-Public Use
  Company Number: CA-BRISTOL-MYERS SQUIBB COMPANY-14203061

PATIENT
  Age: 49 Year
  Sex: Male
  Weight: 71 kg

DRUGS (3)
  1. CETUXIMAB [Suspect]
     Indication: PHARYNGEAL CANCER STAGE UNSPECIFIED
     Dosage: START DOSE OF FIRST COURSE: 07-JAN-2008.
     Dates: start: 20080121, end: 20080121
  2. CISPLATIN [Suspect]
     Indication: PHARYNGEAL CANCER STAGE UNSPECIFIED
     Dosage: START DOSE OF FIRST COURSE: 07-JAN-2008.
     Dates: start: 20080129, end: 20080129
  3. RADIATION THERAPY [Suspect]
     Indication: PHARYNGEAL CANCER STAGE UNSPECIFIED
     Dosage: \1 DOSAGE FORM = 46 GY.NUMBER OF FRACTIONS 23; NUMBER OF ELAPSED DAYS 25.
     Dates: start: 20080201, end: 20080201

REACTIONS (5)
  - ANOREXIA [None]
  - FATIGUE [None]
  - NAUSEA [None]
  - PYREXIA [None]
  - STOMATITIS [None]
